FAERS Safety Report 9035690 (Version 1)
Quarter: 2013Q1

REPORT INFORMATION
  Report Type: Spontaneous
  Country: US (occurrence: US)
  Receive Date: 20130129
  Receipt Date: 20130129
  Transmission Date: 20140127
  Serious: No
  Sender: FDA-Public Use
  Company Number: US-ABBOTT-12P-163-0926103-00

PATIENT
  Sex: Female

DRUGS (4)
  1. HUMIRA 40 MG/0.8 ML PEN [Suspect]
     Indication: PSORIASIS
     Dates: start: 2010
  2. METFORMIN [Suspect]
     Indication: DIABETES MELLITUS
     Dates: start: 2010, end: 201204
  3. METFORMIN [Suspect]
     Dosage: 1 1/2
     Dates: start: 201204
  4. DEPO PROVERA [Concomitant]
     Indication: MENSTRUAL DISORDER

REACTIONS (2)
  - Blood glucose increased [Not Recovered/Not Resolved]
  - Feeling hot [Not Recovered/Not Resolved]
